FAERS Safety Report 6949812-0 (Version None)
Quarter: 2010Q3

REPORT INFORMATION
  Report Type: 
  Country: None (occurrence: None)
  Receive Date: 20100828
  Receipt Date: 20100114
  Transmission Date: 20110219
  Serious: No
  Sender: FDA-Public Use
  Company Number: US-ABBOTT-10P-163-0619279-00

PATIENT
  Sex: Female

DRUGS (4)
  1. NIASPAN [Suspect]
     Indication: BLOOD TRIGLYCERIDES INCREASED
     Dates: start: 20091201, end: 20100113
  2. UNKNOWN MEDICATION [Concomitant]
     Indication: DIABETES MELLITUS
  3. UNKNOWN MEDICATION [Concomitant]
     Indication: HYPERTENSION
  4. UNKNOWN MEDICATION [Concomitant]
     Indication: THYROID DISORDER

REACTIONS (2)
  - BLOOD GLUCOSE INCREASED [None]
  - FATIGUE [None]
